FAERS Safety Report 22622242 (Version 1)
Quarter: 2023Q2

REPORT INFORMATION
  Report Type: Spontaneous
  Country: US (occurrence: US)
  Receive Date: 20230620
  Receipt Date: 20230620
  Transmission Date: 20230722
  Serious: Yes (Hospitalization)
  Sender: FDA-Public Use
  Company Number: US-Teikoku Pharma USA-TPU2023-00343

PATIENT
  Age: 53 Year
  Sex: Male
  Weight: 77.18 kg

DRUGS (2)
  1. LIDODERM [Suspect]
     Active Substance: LIDOCAINE
     Indication: Product used for unknown indication
  2. Medication for glaucoma [Concomitant]

REACTIONS (7)
  - Product dose omission issue [Not Recovered/Not Resolved]
  - Inappropriate schedule of product administration [Unknown]
  - Glaucoma [Unknown]
  - Expired product administered [Unknown]
  - Sacroiliac fusion [Recovered/Resolved]
  - Pain in extremity [Unknown]
  - Procedural pain [Not Recovered/Not Resolved]

NARRATIVE: CASE EVENT DATE: 20081101
